FAERS Safety Report 4996586-9 (Version None)
Quarter: 2006Q2

REPORT INFORMATION
  Report Type: 
  Country: None (occurrence: None)
  Receive Date: 20060505
  Receipt Date: 20060426
  Transmission Date: 20061013
  Serious: Yes (Hospitalization, Other)
  Sender: FDA-Public Use
  Company Number: 2006057689

PATIENT
  Age: 31 Year
  Sex: Male
  Weight: 90.7194 kg

DRUGS (3)
  1. CELEBREX [Suspect]
     Indication: BACK INJURY
     Dosage: 400 MG (200 MG, 2 IN 1 D)
     Dates: start: 20020301
  2. XANAX [Concomitant]
  3. AMBIEN [Concomitant]

REACTIONS (7)
  - CARDIAC DISORDER [None]
  - INTRACARDIAC THROMBUS [None]
  - LOSS OF EMPLOYMENT [None]
  - MYOCARDIAL INFARCTION [None]
  - NERVOUSNESS [None]
  - SLEEP DISORDER [None]
  - THROMBOSIS [None]
